FAERS Safety Report 7346572-9 (Version None)
Quarter: 2011Q1

REPORT INFORMATION
  Report Type: 
  Country: None (occurrence: None)
  Receive Date: 20110311
  Receipt Date: 20110228
  Transmission Date: 20110831
  Serious: Yes (Hospitalization)
  Sender: FDA-Public Use
  Company Number: GB-JNJFOC-20110300979

PATIENT
  Age: 53 Year
  Sex: Male
  Weight: 90 kg

DRUGS (3)
  1. SIMVASTATIN [Concomitant]
     Indication: HYPERCHOLESTEROLAEMIA
     Route: 048
  2. STELARA [Suspect]
     Indication: PSORIASIS
     Route: 058
  3. ASPIRIN [Concomitant]
     Indication: HYPERCHOLESTEROLAEMIA
     Route: 048

REACTIONS (1)
  - MYOCARDIAL INFARCTION [None]
